FAERS Safety Report 6771527-2 (Version None)
Quarter: 2010Q2

REPORT INFORMATION
  Report Type: 
  Country: None (occurrence: None)
  Receive Date: 20100616
  Receipt Date: 20100609
  Transmission Date: 20101027
  Serious: Yes (Other)
  Sender: FDA-Public Use
  Company Number: NL-BAXTER-2010BH015626

PATIENT
  Age: 51 Year
  Sex: Female

DRUGS (4)
  1. GAMMAGARD LIQUID [Suspect]
     Indication: DRUG USE FOR UNKNOWN INDICATION
     Route: 042
     Dates: start: 20100512, end: 20100512
  2. GAMMAGARD LIQUID [Suspect]
     Route: 042
     Dates: start: 20100608, end: 20100608
  3. CITALOPRAM HYDROBROMIDE [Concomitant]
  4. SIMVASTATIN [Concomitant]

REACTIONS (2)
  - NASOPHARYNGITIS [None]
  - PNEUMONIA [None]
